FAERS Safety Report 10141710 (Version 2)
Quarter: 2014Q2

REPORT INFORMATION
  Report Type: Spontaneous
  Country: US (occurrence: US)
  Receive Date: 20140429
  Receipt Date: 20140509
  Transmission Date: 20141212
  Serious: No
  Sender: FDA-Public Use
  Company Number: US-PFIZER INC-2014113146

PATIENT
  Sex: Female

DRUGS (2)
  1. ZOLOFT [Suspect]
     Indication: DEPRESSION
     Dosage: 50 MG, ONCE A DAY
  2. ZOLOFT [Suspect]
     Indication: ANXIETY DISORDER

REACTIONS (2)
  - Depression [Recovered/Resolved]
  - Anxiety [Recovered/Resolved]
